FAERS Safety Report 10517127 (Version 4)
Quarter: 2014Q4

REPORT INFORMATION
  Report Type: Spontaneous
  Country: US (occurrence: US)
  Receive Date: 20141014
  Receipt Date: 20141211
  Transmission Date: 20150528
  Serious: Yes (Hospitalization, Other)
  Sender: FDA-Public Use
  Company Number: US-PFIZER INC-2014280104

PATIENT
  Age: 54 Year
  Sex: Male
  Weight: 103 kg

DRUGS (4)
  1. QUETIAPINE [Concomitant]
     Active Substance: QUETIAPINE
     Dosage: UNK
  2. QUETIAPINE [Concomitant]
     Active Substance: QUETIAPINE
     Dosage: 100 MG, UNK
  3. GEODON [Concomitant]
     Active Substance: ZIPRASIDONE HYDROCHLORIDE\ZIPRASIDONE MESYLATE
     Dosage: UNK
  4. CHANTIX [Suspect]
     Active Substance: VARENICLINE TARTRATE
     Indication: SMOKING CESSATION THERAPY
     Dosage: UNK
     Dates: start: 2006, end: 2009

REACTIONS (7)
  - Derealisation [Recovered/Resolved]
  - Schizophrenia [Recovered/Resolved]
  - Squamous cell carcinoma [Recovered/Resolved]
  - Psychiatric symptom [Unknown]
  - Lethargy [Recovered/Resolved]
  - Delusion [Recovered/Resolved]
  - Drug withdrawal syndrome [Recovered/Resolved]
